FAERS Safety Report 14662887 (Version 1)
Quarter: 2018Q1

REPORT INFORMATION
  Report Type: Spontaneous
  Country: SE (occurrence: SE)
  Receive Date: 20180321
  Receipt Date: 20180321
  Transmission Date: 20180509
  Serious: Yes (Hospitalization)
  Sender: FDA-Public Use
  Company Number: SE-AMGEN-SWESP2018035668

PATIENT
  Age: 79 Year
  Sex: Female

DRUGS (13)
  1. ZOPIKLON [Concomitant]
     Active Substance: ZOPICLONE
     Dosage: UNK
  2. MINIDERM [Concomitant]
     Dosage: UNK
  3. PROLIA [Suspect]
     Active Substance: DENOSUMAB
     Indication: OSTEOPOROSIS
     Dosage: 60 MG, Q6MO
     Route: 058
     Dates: start: 2011
  4. TROMBYL [Concomitant]
     Active Substance: ASPIRIN
     Dosage: UNK
  5. OMEPRAZOL [Concomitant]
     Active Substance: OMEPRAZOLE
     Dosage: UNK
  6. SPIRONOLAKTON [Concomitant]
     Active Substance: SPIRONOLACTONE
     Dosage: UNK
  7. CANDESARTAN. [Concomitant]
     Active Substance: CANDESARTAN
     Dosage: UNK
  8. VAGIFEM [Concomitant]
     Active Substance: ESTRADIOL
     Dosage: UNK
  9. OXASCAND [Concomitant]
     Active Substance: OXAZEPAM
     Dosage: UNK
  10. XERODENT [Concomitant]
     Dosage: UNK
  11. NITROLINGUAL [Concomitant]
     Active Substance: NITROGLYCERIN
     Dosage: UNK
  12. ALVEDON [Concomitant]
     Active Substance: ACETAMINOPHEN
     Dosage: UNK
  13. CITALOPRAM [Concomitant]
     Active Substance: CITALOPRAM HYDROBROMIDE
     Dosage: UNK

REACTIONS (1)
  - Atypical femur fracture [Not Recovered/Not Resolved]

NARRATIVE: CASE EVENT DATE: 20180126
